FAERS Safety Report 7273705-5 (Version None)
Quarter: 2010Q4

REPORT INFORMATION
  Report Type: 
  Country: None (occurrence: None)
  Receive Date: 20101130
  Receipt Date: 20100727
  Transmission Date: 20110411
  Serious: Yes (Life-Threatening, Hospitalization, Disabling)
  Sender: FDA-Public Use
  Company Number: 2010SP041249

PATIENT
  Age: 49 Year
  Sex: Female

DRUGS (2)
  1. NUVARING [Suspect]
     Indication: HORMONE LEVEL ABNORMAL
     Dosage: 1 DF; VAG, 1 DF; VAG
     Route: 067
     Dates: start: 20060101, end: 20081201
  2. NUVARING [Suspect]
     Indication: HORMONE LEVEL ABNORMAL
     Dosage: 1 DF; VAG, 1 DF; VAG
     Route: 067
     Dates: start: 20090601

REACTIONS (1)
  - PULMONARY EMBOLISM [None]
